FAERS Safety Report 4534500-0 (Version None)
Quarter: 2004Q4

REPORT INFORMATION
  Report Type: 
  Country: None (occurrence: None)
  Receive Date: 20041214
  Receipt Date: 20041025
  Transmission Date: 20050328
  Serious: No
  Sender: FDA-Public Use
  Company Number: 2004241300US

PATIENT
  Age: 76 Year
  Sex: Female
  Weight: 72.6 kg

DRUGS (4)
  1. BEXTRA [Suspect]
     Indication: PAIN
     Dosage: 10 MG, QD, ORAL
     Route: 048
     Dates: start: 20040101
  2. ASPIRIN [Concomitant]
  3. NEXIUM [Concomitant]
  4. TYLENOL [Concomitant]

REACTIONS (5)
  - DYSPEPSIA [None]
  - EYE PAIN [None]
  - HOARSENESS [None]
  - PAIN [None]
  - SPINAL COLUMN STENOSIS [None]
